FAERS Safety Report 11812153 (Version 1)
Quarter: 2015Q4

REPORT INFORMATION
  Report Type: Report from Study
  Country: US (occurrence: US)
  Receive Date: 20151208
  Receipt Date: 20151208
  Transmission Date: 20160305
  Serious: Yes (Hospitalization, Other)
  Sender: FDA-Public Use
  Company Number: US-GILEAD-2015-0186693

PATIENT
  Age: 55 Year
  Sex: Female

DRUGS (21)
  1. ADCIRCA [Concomitant]
     Active Substance: TADALAFIL
  2. FLUTICASONE [Concomitant]
     Active Substance: FLUTICASONE\FLUTICASONE PROPIONATE
  3. AMLODIPINE [Concomitant]
     Active Substance: AMLODIPINE BESYLATE
  4. GABAPENTIN. [Concomitant]
     Active Substance: GABAPENTIN
  5. LEVOTHYROXINE. [Concomitant]
     Active Substance: LEVOTHYROXINE
  6. SMZ-TMP [Concomitant]
     Active Substance: SULFAMETHOXAZOLE\TRIMETHOPRIM
  7. HUMALOG [Concomitant]
     Active Substance: INSULIN LISPRO
  8. OXYCODONE [Concomitant]
     Active Substance: OXYCODONE
  9. PREDNISONE. [Concomitant]
     Active Substance: PREDNISONE
  10. CARAFATE [Concomitant]
     Active Substance: SUCRALFATE
  11. TACROLIMUS. [Concomitant]
     Active Substance: TACROLIMUS
  12. TRAZODONE [Concomitant]
     Active Substance: TRAZODONE HYDROCHLORIDE
  13. FUROSEMIDE. [Concomitant]
     Active Substance: FUROSEMIDE
  14. MAGNESIUM [Concomitant]
     Active Substance: MAGNESIUM
  15. AMBRISENTAN [Suspect]
     Active Substance: AMBRISENTAN
     Indication: PULMONARY ARTERIAL HYPERTENSION
     Dosage: 10 MG, QD
     Route: 065
     Dates: start: 20140807
  16. VALTREX [Concomitant]
     Active Substance: VALACYCLOVIR HYDROCHLORIDE
  17. OMEPRAZOLE. [Concomitant]
     Active Substance: OMEPRAZOLE
     Route: 065
  18. ALPRAZOLAM. [Concomitant]
     Active Substance: ALPRAZOLAM
  19. CYCLOBENZAPRINE [Concomitant]
     Active Substance: CYCLOBENZAPRINE
  20. MYCOPHENOLATE [Concomitant]
     Active Substance: MYCOPHENOLIC ACID
  21. SERTRALINE [Concomitant]
     Active Substance: SERTRALINE HYDROCHLORIDE

REACTIONS (1)
  - Pneumonia [Recovered/Resolved]

NARRATIVE: CASE EVENT DATE: 201511
